FAERS Safety Report 18386808 (Version 1)
Quarter: 2020Q4

REPORT INFORMATION
  Report Type: Spontaneous
  Country: US (occurrence: US)
  Receive Date: 20201015
  Receipt Date: 20201015
  Transmission Date: 20210114
  Serious: Yes (Hospitalization, Other)
  Sender: FDA-Public Use
  Company Number: None

PATIENT
  Age: 37 Year
  Sex: Female
  Weight: 89.55 kg

DRUGS (2)
  1. MAKENA [Suspect]
     Active Substance: HYDROXYPROGESTERONE CAPROATE
     Indication: PREMATURE LABOUR
     Dosage: ?          QUANTITY:1 INJECTION(S);OTHER FREQUENCY:ONCE MONTHLY;OTHER ROUTE:INJECTION?
  2. OTC VITAMINS [Concomitant]

REACTIONS (9)
  - Oedema [None]
  - Stillbirth [None]
  - Foetal heart rate abnormal [None]
  - Maternal exposure during pregnancy [None]
  - Blood pressure increased [None]
  - Facial paralysis [None]
  - Pre-eclampsia [None]
  - Maternal drugs affecting foetus [None]
  - Cough [None]

NARRATIVE: CASE EVENT DATE: 20190522
